FAERS Safety Report 5975408-3 (Version None)
Quarter: 2008Q4

REPORT INFORMATION
  Report Type: 
  Country: None (occurrence: None)
  Receive Date: 20081202
  Receipt Date: 20081121
  Transmission Date: 20090506
  Serious: Yes (Death, Hospitalization)
  Sender: FDA-Public Use
  Company Number: GB-AMGEN-US320852

PATIENT
  Age: 78 Year
  Sex: Female

DRUGS (11)
  1. ENBREL [Suspect]
     Indication: RHEUMATOID ARTHRITIS
     Dosage: 25MG, FREQUENCY UNKNOWN
     Route: 058
     Dates: start: 20080601, end: 20081009
  2. ASPIRIN [Concomitant]
     Dosage: UNKNOWN
  3. BISOPROLOL FUMARATE [Concomitant]
     Dosage: UNKNOWN
  4. DIGOXIN [Concomitant]
     Dosage: UNKNOWN
  5. RALOXIFENE HYDROCHLORIDE [Concomitant]
     Dosage: UNKNOWN
  6. MORPHINE SULFATE [Concomitant]
     Dosage: UNKNOWN
  7. ACETAMINOPHEN [Concomitant]
     Dosage: UNKNOWN
  8. PREDNISOLONE [Concomitant]
     Dosage: UNKNOWN
  9. QUININE [Concomitant]
     Dosage: UNKNOWN
  10. FLUCONAZOLE [Concomitant]
     Dosage: UNKNOWN
  11. TRIAMCINOLONE ACETONIDE [Concomitant]

REACTIONS (3)
  - PAIN [None]
  - PNEUMONIA [None]
  - SKIN ULCER [None]
